FAERS Safety Report 7641834-X (Version None)
Quarter: 2011Q3

REPORT INFORMATION
  Report Type: 
  Country: None (occurrence: None)
  Receive Date: 20110728
  Receipt Date: 20110721
  Transmission Date: 20111222
  Serious: Yes (Other)
  Sender: FDA-Public Use
  Company Number: US-JNJFOC-20110404442

PATIENT
  Sex: Female

DRUGS (1)
  1. NUCYNTA [Suspect]
     Indication: PAIN MANAGEMENT
     Dosage: 50 TO 100MG, HALF TO 1 TABET, ONCE EVERY 12 HOURS
     Route: 048
     Dates: start: 20110401, end: 20110404

REACTIONS (5)
  - SOMNOLENCE [None]
  - MENTAL IMPAIRMENT [None]
  - OEDEMA [None]
  - LETHARGY [None]
  - RENAL PAIN [None]
